FAERS Safety Report 12635785 (Version 1)
Quarter: 2016Q3

REPORT INFORMATION
  Report Type: Spontaneous
  Country: US (occurrence: US)
  Receive Date: 20160809
  Receipt Date: 20160809
  Transmission Date: 20161109
  Serious: No
  Sender: FDA-Public Use
  Company Number: US-PFIZER INC-2016372442

PATIENT
  Age: 61 Year
  Sex: Female
  Weight: 74.84 kg

DRUGS (15)
  1. LORATADINE. [Concomitant]
     Active Substance: LORATADINE
     Indication: HYPERSENSITIVITY
     Dosage: 20 MG, 1X/DAY (2 10 MG PILLS BY ONCE A DAY BY MOUTH)
     Route: 048
  2. SALMON OIL [Concomitant]
     Active Substance: FISH OIL
     Dosage: 1000 MG, 1X/DAY(1000 MG SOFT GEL TAB BY MOUTH ONCE DAILY)
  3. TOVIAZ [Concomitant]
     Active Substance: FESOTERODINE FUMARATE
     Indication: HYPERTONIC BLADDER
     Dosage: 8 MG, 1X/DAY
     Route: 048
  4. LORATADINE. [Concomitant]
     Active Substance: LORATADINE
     Indication: DERMATITIS CONTACT
  5. GARDEN OF LIFE PRIMAL DEFENSE HSO PROBIOTIC FORMULA [Concomitant]
     Indication: SUPPLEMENTATION THERAPY
     Dosage: 1 DF, DAILY(ONE CAPLET A DAY)
  6. GARDEN OF LIFE PRIMAL DEFENSE HSO PROBIOTIC FORMULA [Concomitant]
     Indication: CONSTIPATION
  7. ESTRING [Suspect]
     Active Substance: ESTRADIOL
     Indication: VULVOVAGINAL DRYNESS
     Dosage: A SLOW RELEASE ESTROGEN RING
     Dates: start: 20160316, end: 2016
  8. HYDROCHLOROTHIAZIDE. [Concomitant]
     Active Substance: HYDROCHLOROTHIAZIDE
     Indication: HYPERTENSION
     Dosage: HALF OF A 25 MG TABLET A DAY BY MOUTH, DAILY
     Route: 048
  9. VITAMIN D3 [Concomitant]
     Active Substance: CHOLECALCIFEROL
     Indication: SUPPLEMENTATION THERAPY
     Dosage: 5000 IU, CAPSULE BY MOUTH
     Route: 048
  10. MAGNESIUM [Concomitant]
     Active Substance: MAGNESIUM
     Dosage: 125 MG, ALTERNATE DAY(125 MG EVERY OTHER DAY BY MOUTH)
     Route: 048
  11. SERTRALINE [Concomitant]
     Active Substance: SERTRALINE HYDROCHLORIDE
     Indication: PREMENSTRUAL SYNDROME
     Dosage: 50 MG, 1X/DAY
     Route: 048
  12. MERIVA [Concomitant]
     Indication: ANTIINFLAMMATORY THERAPY
     Dosage: 500 MG, 1X/DAY
     Route: 048
  13. ESTRING [Suspect]
     Active Substance: ESTRADIOL
     Indication: URINARY INCONTINENCE
  14. ATENOLOL. [Concomitant]
     Active Substance: ATENOLOL
     Indication: HYPERTENSION
     Dosage: 50 MG, 2X/DAY(50 MG TWICE A DAY PILL BY MOUTH)
     Route: 048
  15. FLAX SEED PRIMROSE OIL [Concomitant]
     Indication: FIBROMA
     Dosage: 1300 MG, 1X/DAY (1300 MG SOFT GEL TABS ONCE A DAY BY MOUTH)
     Route: 048

REACTIONS (1)
  - Vaginal haemorrhage [Unknown]

NARRATIVE: CASE EVENT DATE: 201606
